FAERS Safety Report 17608865 (Version 1)
Quarter: 2020Q2

REPORT INFORMATION
  Report Type: Spontaneous
  Country: US (occurrence: US)
  Receive Date: 20200401
  Receipt Date: 20200401
  Transmission Date: 20200713
  Serious: Yes (Life-Threatening, Other)
  Sender: FDA-Public Use
  Company Number: US-UCBSA-2017003460

PATIENT
  Age: 15 Year
  Sex: Female

DRUGS (4)
  1. METHYLPHENIDATE HYDROCHLORIDE. [Suspect]
     Active Substance: METHYLPHENIDATE HYDROCHLORIDE
     Indication: DISTURBANCE IN ATTENTION
     Dosage: INCREASED DOSE
  2. FLUOXETINE [Suspect]
     Active Substance: FLUOXETINE HYDROCHLORIDE
     Indication: AFFECTIVE DISORDER
     Dosage: INCREASED DOSE
  3. METHYLPHENIDATE HYDROCHLORIDE. [Suspect]
     Active Substance: METHYLPHENIDATE HYDROCHLORIDE
     Indication: AFFECTIVE DISORDER
     Dosage: INCREASED DOSE
  4. FLUOXETINE [Suspect]
     Active Substance: FLUOXETINE HYDROCHLORIDE
     Indication: DISTURBANCE IN ATTENTION
     Dosage: INCREASED DOSE

REACTIONS (2)
  - Serotonin syndrome [Recovered/Resolved]
  - Depression [Not Recovered/Not Resolved]
